FAERS Safety Report 8866925 (Version 1)
Quarter: 2012Q4

REPORT INFORMATION
  Report Type: 
  Country: US (occurrence: US)
  Receive Date: 20121025
  Receipt Date: 20121025
  Transmission Date: 20130627
  Serious: No
  Sender: FDA-Public Use
  Company Number: US-AMGEN-USASP2012013618

PATIENT
  Age: 60 Year
  Sex: Female
  Weight: 77.1 kg

DRUGS (8)
  1. ENBREL [Suspect]
     Indication: PRODUCT USED FOR UNKNOWN INDICATION
     Dosage: 50 mg, qwk
  2. METHOTREXATE [Concomitant]
     Dosage: 2.5 mg, UNK
  3. NORVASC [Concomitant]
     Dosage: 2.5 mg, UNK
  4. ATENOLOL [Concomitant]
     Dosage: 25 mg, UNK
  5. SIMVASTATIN [Concomitant]
     Dosage: 40 mg, UNK
  6. VITAMIN D /00107901/ [Concomitant]
  7. FOLGARD [Concomitant]
  8. DEXILANT [Concomitant]
     Dosage: 30 mg, UNK

REACTIONS (1)
  - Injection site pain [Unknown]
